FAERS Safety Report 4467798-8 (Version None)
Quarter: 2004Q4

REPORT INFORMATION
  Report Type: 
  Country: None (occurrence: None)
  Receive Date: 20041001
  Receipt Date: 20040921
  Transmission Date: 20050328
  Serious: Yes (Hospitalization, Disabling)
  Sender: FDA-Public Use
  Company Number: 2004AC00377

PATIENT
  Age: 65 Year
  Sex: Female

DRUGS (1)
  1. RHINOCORT [Suspect]
     Dosage: EVERY 2 HOURS FOR 48 HOURS

REACTIONS (3)
  - ADHERENT LEUKOMA [None]
  - CORNEAL ULCER [None]
  - MEDICATION ERROR [None]
